FAERS Safety Report 9114211 (Version 2)
Quarter: 2013Q1

REPORT INFORMATION
  Report Type: Spontaneous
  Country: US (occurrence: US)
  Receive Date: 20130208
  Receipt Date: 20130322
  Transmission Date: 20140127
  Serious: No
  Sender: FDA-Public Use
  Company Number: US-PFIZER INC-2013051067

PATIENT
  Sex: 0

DRUGS (3)
  1. SKELAXIN [Suspect]
     Indication: MUSCULOSKELETAL DISCOMFORT
     Dosage: UNK
  2. SKELAXIN [Suspect]
     Indication: MUSCULOSKELETAL DISCOMFORT
  3. SKELAXIN [Suspect]
     Indication: MUSCLE SPASMS

REACTIONS (1)
  - Muscle spasms [Unknown]
